FAERS Safety Report 5143899-6 (Version None)
Quarter: 2006Q4

REPORT INFORMATION
  Report Type: 
  Country: None (occurrence: None)
  Receive Date: 20061102
  Receipt Date: 20061102
  Transmission Date: 20070319
  Serious: Yes (Other)
  Sender: FDA-Public Use
  Company Number: None

PATIENT
  Age: 55 Year
  Sex: Female
  Weight: 52.1637 kg

DRUGS (5)
  1. LEVAQUIN [Suspect]
     Indication: INFECTION
     Dosage: 500MG ONCE DAILY ORALLY
     Route: 048
     Dates: start: 20050205, end: 20050209
  2. MOTRIN [Concomitant]
  3. VICOPREFEN [Concomitant]
  4. LISINOPRIL [Concomitant]
  5. SUDAFED 12 HOUR [Concomitant]

REACTIONS (4)
  - ARTHRALGIA [None]
  - HYPERTENSION [None]
  - MOBILITY DECREASED [None]
  - PAIN [None]
